FAERS Safety Report 6435584-5 (Version None)
Quarter: 2009Q4

REPORT INFORMATION
  Report Type: 
  Country: None (occurrence: None)
  Receive Date: 20091111
  Receipt Date: 20091021
  Transmission Date: 20100525
  Serious: Yes (Death, Other)
  Sender: FDA-Public Use
  Company Number: EC-BAYER-200923282LA

PATIENT
  Age: 55 Year
  Sex: Female

DRUGS (1)
  1. ADALAT [Suspect]
     Indication: HYPERTENSIVE CRISIS
     Dosage: TOTAL DAILY DOSE: 10 MG  UNIT DOSE: 10 MG
     Route: 060
     Dates: start: 20091015, end: 20091015

REACTIONS (2)
  - HYPOTENSION [None]
  - SHOCK [None]
